FAERS Safety Report 13768375 (Version 1)
Quarter: 2017Q3

REPORT INFORMATION
  Report Type: Report from Study
  Country: None (occurrence: BR)
  Receive Date: 20170719
  Receipt Date: 20170719
  Transmission Date: 20171127
  Serious: Yes (Hospitalization, Other)
  Sender: FDA-Public Use
  Company Number: BR-ABBVIE-17K-020-2042604-00

PATIENT
  Age: 49 Year
  Sex: Female
  Weight: 85 kg

DRUGS (1)
  1. HUMIRA [Suspect]
     Active Substance: ADALIMUMAB
     Indication: RHEUMATOID ARTHRITIS
     Route: 058
     Dates: start: 2010

REACTIONS (5)
  - Bacterial infection [Not Recovered/Not Resolved]
  - Bacterial infection [Recovered/Resolved]
  - Osteomyelitis [Not Recovered/Not Resolved]
  - Intervertebral disc protrusion [Recovered/Resolved]
  - Suture related complication [Recovered/Resolved]

NARRATIVE: CASE EVENT DATE: 201611
